FAERS Safety Report 9903857 (Version 4)
Quarter: 2015Q2

REPORT INFORMATION
  Report Type: Report from Study
  Country: US (occurrence: US)
  Receive Date: 20140218
  Receipt Date: 20150613
  Transmission Date: 20150821
  Serious: Yes (Hospitalization, Other)
  Sender: FDA-Public Use
  Company Number: US-BIOGENIDEC-2014BI013699

PATIENT
  Age: 48 Year
  Sex: Female

DRUGS (1)
  1. TYSABRI [Suspect]
     Active Substance: NATALIZUMAB
     Indication: MULTIPLE SCLEROSIS
     Route: 042
     Dates: start: 20120516, end: 20141120

REACTIONS (11)
  - Tremor [Recovered/Resolved with Sequelae]
  - Musculoskeletal disorder [Recovered/Resolved]
  - Bone disorder [Unknown]
  - Visual impairment [Recovered/Resolved with Sequelae]
  - Paraesthesia [Not Recovered/Not Resolved]
  - Mobility decreased [Not Recovered/Not Resolved]
  - Thrombosis [Recovered/Resolved]
  - Dyspnoea [Recovered/Resolved with Sequelae]
  - Cartilage atrophy [Unknown]
  - Balance disorder [Unknown]
  - Asthenia [Not Recovered/Not Resolved]

NARRATIVE: CASE EVENT DATE: 20140121
